FAERS Safety Report 4597296-2 (Version None)
Quarter: 2005Q1

REPORT INFORMATION
  Report Type: 
  Country: None (occurrence: None)
  Receive Date: 20050303
  Receipt Date: 20041208
  Transmission Date: 20050727
  Serious: Yes (Disabling, Other)
  Sender: FDA-Public Use
  Company Number: US-MERCK-0412USA01020

PATIENT
  Age: 83 Year
  Sex: Female
  Weight: 50 kg

DRUGS (3)
  1. FOSAMAX [Suspect]
     Indication: OSTEOPOROSIS
     Route: 048
     Dates: start: 19820101
  2. SYNTHROID [Concomitant]
     Route: 065
  3. ANTINEOPLASTIC (UNSPECIFIED) [Suspect]
     Route: 065

REACTIONS (6)
  - ASEPTIC NECROSIS BONE [None]
  - HIP FRACTURE [None]
  - IMPLANT SITE INFECTION [None]
  - NASAL DISORDER [None]
  - REGURGITATION OF FOOD [None]
  - THROMBOSIS [None]
